FAERS Safety Report 11059494 (Version 1)
Quarter: 2015Q2

REPORT INFORMATION
  Report Type: Spontaneous
  Country: US (occurrence: None)
  Receive Date: 20150422
  Receipt Date: 20150422
  Transmission Date: 20150821
  Serious: Yes (Life-Threatening, Hospitalization)
  Sender: FDA-Public Use
  Company Number: None

PATIENT
  Age: 81 Year
  Sex: Male
  Weight: 94.9 kg

DRUGS (18)
  1. LEXISCAN [Suspect]
     Active Substance: REGADENOSON
     Indication: CARDIAC STRESS TEST
     Route: 042
     Dates: start: 20150404, end: 20150404
  2. DOCUSATE SODIUM. [Concomitant]
     Active Substance: DOCUSATE SODIUM
  3. ATORVASTATIN [Concomitant]
     Active Substance: ATORVASTATIN
  4. LANTUS [Concomitant]
     Active Substance: INSULIN GLARGINE
  5. DUONEB [Concomitant]
     Active Substance: ALBUTEROL SULFATE\IPRATROPIUM BROMIDE
  6. TAMSULOSIN [Concomitant]
     Active Substance: TAMSULOSIN
  7. CEFTRIXIAXONE [Concomitant]
  8. GABAPENTIN. [Concomitant]
     Active Substance: GABAPENTIN
  9. FUROSEMIDE. [Concomitant]
     Active Substance: FUROSEMIDE
  10. AZITHROMYCIN [Concomitant]
     Active Substance: AZITHROMYCIN ANHYDROUS
  11. ASA [Concomitant]
     Active Substance: ASPIRIN
  12. LEXISCAN [Suspect]
     Active Substance: REGADENOSON
     Indication: NUCLEAR MAGNETIC RESONANCE IMAGING
     Route: 042
     Dates: start: 20150404, end: 20150404
  13. TEMAZEPAM. [Concomitant]
     Active Substance: TEMAZEPAM
  14. COLCHICINE. [Concomitant]
     Active Substance: COLCHICINE
  15. FEBUXOSTAT. [Concomitant]
     Active Substance: FEBUXOSTAT
  16. LACTULOSE. [Concomitant]
     Active Substance: LACTULOSE
  17. METOPROLOL [Concomitant]
     Active Substance: METOPROLOL
  18. HUMALOG INSULINE SLIDING SCALE SQ [Concomitant]

REACTIONS (3)
  - Contrast media reaction [None]
  - Ventricular fibrillation [None]
  - Cardiac arrest [None]

NARRATIVE: CASE EVENT DATE: 20150403
